FAERS Safety Report 15351846 (Version 1)
Quarter: 2018Q3

REPORT INFORMATION
  Report Type: Spontaneous
  Country: DE (occurrence: DE)
  Receive Date: 20180905
  Receipt Date: 20180905
  Transmission Date: 20181010
  Serious: Yes (Hospitalization)
  Sender: FDA-Public Use
  Company Number: PHHY2018DE073095

PATIENT
  Age: 32 Year
  Sex: Female

DRUGS (13)
  1. LORAZEPAM. [Concomitant]
     Active Substance: LORAZEPAM
     Indication: PRODUCT USED FOR UNKNOWN INDICATION
     Dosage: 3 MG, QD
     Route: 048
     Dates: start: 20180103, end: 20180110
  2. LORAZEPAM. [Concomitant]
     Active Substance: LORAZEPAM
     Dosage: 1.5 MG, QD
     Route: 048
     Dates: start: 20180122, end: 20180124
  3. CITALOPRAM [Concomitant]
     Active Substance: CITALOPRAM HYDROBROMIDE
     Indication: PRODUCT USED FOR UNKNOWN INDICATION
     Dosage: 20 MG, QD (FOR MONTHS)
     Route: 048
  4. LORAZEPAM. [Concomitant]
     Active Substance: LORAZEPAM
     Dosage: 1 MG, QD
     Route: 048
     Dates: start: 20180125, end: 20180128
  5. RISPERIDONE. [Suspect]
     Active Substance: RISPERIDONE
     Dosage: 1 MG, QD
     Route: 048
     Dates: start: 20180121, end: 201801
  6. LORAZEPAM. [Concomitant]
     Active Substance: LORAZEPAM
     Dosage: 0.5 MG, QD
     Route: 048
     Dates: start: 20180129, end: 20180201
  7. RISPERIDONE. [Suspect]
     Active Substance: RISPERIDONE
     Dosage: 1.5 MG, QD
     Route: 048
     Dates: start: 20180104, end: 20180120
  8. RISPERIDONE. [Suspect]
     Active Substance: RISPERIDONE
     Dosage: 0.5 MG, QD
     Route: 048
     Dates: start: 20180201, end: 201802
  9. MIRTAZAPINE. [Concomitant]
     Active Substance: MIRTAZAPINE
     Dosage: 30 MG, QD
     Route: 048
     Dates: start: 20180104
  10. LORAZEPAM. [Concomitant]
     Active Substance: LORAZEPAM
     Dosage: 2.5 MG, QD
     Route: 048
     Dates: start: 20180111, end: 20180115
  11. LORAZEPAM. [Concomitant]
     Active Substance: LORAZEPAM
     Dosage: 2 MG, QD
     Route: 048
     Dates: start: 20180116, end: 20180121
  12. RISPERIDONE. [Suspect]
     Active Substance: RISPERIDONE
     Indication: PRODUCT USED FOR UNKNOWN INDICATION
     Dosage: 0.5 MG, QD
     Route: 048
     Dates: start: 20180103, end: 20180103
  13. MIRTAZAPINE. [Concomitant]
     Active Substance: MIRTAZAPINE
     Indication: PRODUCT USED FOR UNKNOWN INDICATION
     Dosage: 15 MG, QD
     Route: 048
     Dates: start: 20180103, end: 20180103

REACTIONS (3)
  - Galactorrhoea [Recovered/Resolved]
  - Antipsychotic drug level below therapeutic [Unknown]
  - Blood prolactin increased [Recovered/Resolved]

NARRATIVE: CASE EVENT DATE: 20180124
